FAERS Safety Report 5685271-6 (Version None)
Quarter: 2008Q1

REPORT INFORMATION
  Report Type: 
  Country: None (occurrence: None)
  Receive Date: 20080328
  Receipt Date: 20080319
  Transmission Date: 20080703
  Serious: Yes (Death)
  Sender: FDA-Public Use
  Company Number: US-PFIZER INC-2008017710

PATIENT
  Age: 6 Year
  Sex: Male

DRUGS (10)
  1. DOXORUBICIN HCL [Suspect]
     Indication: BURKITT'S LYMPHOMA
  2. CARBOPLATIN [Suspect]
     Indication: BURKITT'S LYMPHOMA
     Dosage: DAILY DOSE:50MG
     Route: 042
  3. CIDOFOVIR [Suspect]
     Indication: BURKITT'S LYMPHOMA
  4. ETOPOSIDE [Suspect]
     Indication: BURKITT'S LYMPHOMA
  5. VINCRISTINE [Suspect]
     Indication: BURKITT'S LYMPHOMA
  6. IFOSFAMIDE [Suspect]
     Indication: BURKITT'S LYMPHOMA
  7. CYCLOPHOSPHAMIDE [Suspect]
     Indication: BURKITT'S LYMPHOMA
  8. METHOTREXATE [Suspect]
     Indication: BURKITT'S LYMPHOMA
  9. RITUXIMAB [Suspect]
     Indication: BURKITT'S LYMPHOMA
  10. PREDNISONE TAB [Suspect]
     Indication: BURKITT'S LYMPHOMA

REACTIONS (11)
  - ACUTE GRAFT VERSUS HOST DISEASE IN LIVER [None]
  - ACUTE GRAFT VERSUS HOST DISEASE IN SKIN [None]
  - BURKITT'S LYMPHOMA RECURRENT [None]
  - COMA [None]
  - CSF PROTEIN INCREASED [None]
  - ENCEPHALOPATHY [None]
  - GLIOSIS [None]
  - MITOCHONDRIAL CYTOPATHY [None]
  - PROGRESSIVE MULTIFOCAL LEUKOENCEPHALOPATHY [None]
  - STEM CELL TRANSPLANT [None]
  - SUBDURAL EFFUSION [None]
